FAERS Safety Report 15795485 (Version 1)
Quarter: 2019Q1

REPORT INFORMATION
  Report Type: Spontaneous
  Country: US (occurrence: US)
  Receive Date: 20190107
  Receipt Date: 20190107
  Transmission Date: 20190417
  Serious: No
  Sender: FDA-Public Use
  Company Number: US-TARO-2018TAR00503

PATIENT
  Sex: Male
  Weight: 82.99 kg

DRUGS (2)
  1. DESOXIMETASONE CREAM USP 0.05% [Suspect]
     Active Substance: DESOXIMETASONE
     Indication: DRY SKIN
  2. DESOXIMETASONE CREAM USP 0.05% [Suspect]
     Active Substance: DESOXIMETASONE
     Indication: ERYTHEMA
     Dosage: UNK UNK, 2X/DAY
     Route: 061
     Dates: start: 201805

REACTIONS (2)
  - Drug ineffective [Not Recovered/Not Resolved]
  - Product quality issue [Not Recovered/Not Resolved]

NARRATIVE: CASE EVENT DATE: 2018
